FAERS Safety Report 5391900-7 (Version None)
Quarter: 2007Q3

REPORT INFORMATION
  Report Type: 
  Country: None (occurrence: None)
  Receive Date: 20070720
  Receipt Date: 20070711
  Transmission Date: 20080115
  Serious: Yes (Hospitalization, Other)
  Sender: FDA-Public Use
  Company Number: GB-JNJFOC-20070702567

PATIENT
  Sex: Male
  Weight: 75 kg

DRUGS (11)
  1. REMICADE [Suspect]
  2. REMICADE [Suspect]
     Indication: RHEUMATOID ARTHRITIS
  3. METHOTREXATE [Concomitant]
  4. PREDNISOLONE [Concomitant]
  5. ACTONEL [Concomitant]
  6. AMLODIPINE [Concomitant]
  7. BENDROFLUAZIDE [Concomitant]
  8. DICLOFENAC [Concomitant]
  9. FOSINOPRIL SODIUM [Concomitant]
  10. KAPAKE [Concomitant]
  11. TRAMADOL HCL [Concomitant]

REACTIONS (1)
  - LUNG NEOPLASM MALIGNANT [None]
